FAERS Safety Report 7584884-4 (Version None)
Quarter: 2011Q2

REPORT INFORMATION
  Report Type: 
  Country: None (occurrence: None)
  Receive Date: 20110630
  Receipt Date: 20110629
  Transmission Date: 20111010
  Serious: Yes (Death)
  Sender: FDA-Public Use
  Company Number: PHHY2011DE57515

PATIENT
  Sex: Female

DRUGS (3)
  1. INSULIN [Concomitant]
  2. SANDOSTATIN LAR [Suspect]
     Indication: ACROMEGALY
     Dosage: 20 MG, QMO
     Route: 030
     Dates: start: 20080924, end: 20081021
  3. ASPIRIN [Concomitant]

REACTIONS (1)
  - HAEMORRHAGE [None]
